FAERS Safety Report 4830006-X (Version None)
Quarter: 2005Q4

REPORT INFORMATION
  Report Type: 
  Country: None (occurrence: None)
  Receive Date: 20051117
  Receipt Date: 20051110
  Transmission Date: 20060501
  Serious: Yes (Hospitalization, Other)
  Sender: FDA-Public Use
  Company Number: NL-JNJFOC-20050605393

PATIENT
  Sex: Male
  Weight: 71 kg

DRUGS (15)
  1. DOXIL [Suspect]
     Route: 042
  2. DOXIL [Suspect]
     Indication: MULTIPLE MYELOMA
     Dosage: 30MG/M2
     Route: 042
  3. VELCADE [Suspect]
     Dosage: THIRD CYCLE
     Route: 042
  4. VELCADE [Suspect]
     Indication: MULTIPLE MYELOMA
     Route: 042
  5. ACENOCOUMAROL [Concomitant]
     Route: 048
  6. ASCORBIC ACID [Concomitant]
     Route: 048
  7. APD [Concomitant]
     Indication: OSTEOPOROSIS
     Route: 042
  8. APD [Concomitant]
     Indication: MULTIPLE MYELOMA
     Route: 042
  9. ZOFRAN [Concomitant]
     Dosage: PRN
     Route: 042
  10. COZAAR [Concomitant]
     Route: 048
  11. COZAAR [Concomitant]
     Indication: HYPERTENSION
     Dosage: IN THE MORNING
     Route: 048
  12. COZAAR [Concomitant]
     Indication: HYPERTENSION
     Dosage: IN THE EVENING
     Route: 048
  13. RYTHMOL [Concomitant]
     Indication: ATRIAL FIBRILLATION
     Route: 048
  14. XATROL XR [Concomitant]
     Route: 048
  15. MAGNESIUM OXIDE [Concomitant]
     Route: 048

REACTIONS (4)
  - DIARRHOEA [None]
  - ILEUS [None]
  - PULMONARY EMBOLISM [None]
  - PYREXIA [None]
